FAERS Safety Report 5755248-0 (Version None)
Quarter: 2008Q2

REPORT INFORMATION
  Report Type: 
  Country: None (occurrence: None)
  Receive Date: 20080529
  Receipt Date: 20080529
  Transmission Date: 20081010
  Serious: Yes (Other)
  Sender: FDA-Public Use
  Company Number: None

PATIENT
  Age: 57 Year
  Sex: Male
  Weight: 111.1 kg

DRUGS (1)
  1. LINEZOLID [Suspect]
     Indication: ANTI-INFECTIVE THERAPY
     Dosage: 600 MG BID IV
     Route: 042
     Dates: start: 20080504, end: 20080505

REACTIONS (2)
  - NAUSEA [None]
  - VOMITING [None]
